FAERS Safety Report 25721146 (Version 1)
Quarter: 2025Q3

REPORT INFORMATION
  Report Type: Report from Study
  Country: US (occurrence: US)
  Receive Date: 20250825
  Receipt Date: 20250825
  Transmission Date: 20251021
  Serious: No
  Sender: SUNOVION
  Company Number: US-SUMITOMO PHARMA SWITZERLAND GMBH-2025SPA010573

PATIENT
  Age: 58 Year
  Sex: Male

DRUGS (14)
  1. ORGOVYX [Suspect]
     Active Substance: RELUGOLIX
     Indication: Prostate cancer
     Route: 048
  2. ORGOVYX [Suspect]
     Active Substance: RELUGOLIX
     Route: 048
  3. NUBEQA [Suspect]
     Active Substance: DAROLUTAMIDE
     Indication: Product used for unknown indication
  4. ATENOLOL [Concomitant]
     Active Substance: ATENOLOL
  5. ATORVASTATIN [Concomitant]
     Active Substance: ATORVASTATIN
  6. BIKTARVY [Concomitant]
     Active Substance: BICTEGRAVIR SODIUM\EMTRICITABINE\TENOFOVIR ALAFENAMIDE FUMARATE
  7. DOCETAXEL [Concomitant]
     Active Substance: DOCETAXEL
  8. LEVOTHYROXINE [Concomitant]
     Active Substance: LEVOTHYROXINE
  9. LOSARTAN [Concomitant]
     Active Substance: LOSARTAN
  10. MORPHINE [Concomitant]
     Active Substance: MORPHINE
  11. OXYCODONE [Concomitant]
     Active Substance: OXYCODONE
  12. TADALAFIL [Concomitant]
     Active Substance: TADALAFIL
  13. TYLENOL [Concomitant]
     Active Substance: ACETAMINOPHEN
  14. VENLAFAXINE [Concomitant]
     Active Substance: VENLAFAXINE HYDROCHLORIDE

REACTIONS (3)
  - Cough [Unknown]
  - Vomiting [Unknown]
  - Dizziness [Unknown]

NARRATIVE: CASE EVENT DATE: 20250806
